FAERS Safety Report 16804302 (Version 1)
Quarter: 2019Q3

REPORT INFORMATION
  Report Type: Other
  Country: US (occurrence: US)
  Receive Date: 20190913
  Receipt Date: 20190913
  Transmission Date: 20191005
  Serious: Yes (Hospitalization)
  Sender: FDA-Public Use
  Company Number: US-AJANTA PHARMA USA INC.-2074429

PATIENT
  Age: 30 Year
  Sex: Male

DRUGS (3)
  1. VALPROIC ACID. [Suspect]
     Active Substance: VALPROIC ACID
  2. BRIVARACETAM [Concomitant]
     Active Substance: BRIVARACETAM
  3. RISPERIDONE. [Suspect]
     Active Substance: RISPERIDONE

REACTIONS (1)
  - Hyperammonaemic encephalopathy [Recovered/Resolved]
